FAERS Safety Report 14140309 (Version 1)
Quarter: 2017Q4

REPORT INFORMATION
  Report Type: Spontaneous
  Country: US (occurrence: US)
  Receive Date: 20171030
  Receipt Date: 20171030
  Transmission Date: 20180321
  Serious: Yes (Other)
  Sender: FDA-Public Use
  Company Number: US-ACCORD-047083

PATIENT
  Sex: Male

DRUGS (1)
  1. ESCITALOPRAM [Suspect]
     Active Substance: ESCITALOPRAM OXALATE
     Indication: PRODUCT USED FOR UNKNOWN INDICATION
     Dosage: IN OCT-2015 RESTARTED,DISCONTINUED IN MAY-2016
     Route: 048

REACTIONS (6)
  - Sexual dysfunction [Unknown]
  - Nervousness [Unknown]
  - Poor quality sleep [Unknown]
  - Palpitations [Unknown]
  - Night sweats [Unknown]
  - Expired product administered [Unknown]
